FAERS Safety Report 6193437-4 (Version None)
Quarter: 2009Q2

REPORT INFORMATION
  Report Type: 
  Country: None (occurrence: None)
  Receive Date: 20090518
  Receipt Date: 20081212
  Transmission Date: 20091009
  Serious: No
  Sender: FDA-Public Use
  Company Number: US-ABBOTT-08P-163-0493007-00

PATIENT
  Sex: Female
  Weight: 90.8 kg

DRUGS (3)
  1. AZMACORT [Suspect]
     Indication: ASTHMA
     Dosage: 2-4 PUFFS TWICE DAILY AS NEEDED
     Route: 055
     Dates: start: 20080923
  2. ALBUTEROL [Concomitant]
     Indication: ASTHMA
     Route: 055
     Dates: start: 20080923
  3. OTHER MEDICATIONS NOT REPORTED NAMES [Concomitant]
     Indication: DRUG USE FOR UNKNOWN INDICATION

REACTIONS (1)
  - DYSPHONIA [None]
